FAERS Safety Report 6723328-9 (Version None)
Quarter: 2010Q2

REPORT INFORMATION
  Report Type: 
  Country: None (occurrence: None)
  Receive Date: 20100513
  Receipt Date: 20100412
  Transmission Date: 20101027
  Serious: No
  Sender: FDA-Public Use
  Company Number: US-BAYER-201014263BCC

PATIENT
  Age: 79 Year
  Sex: Male
  Weight: 84 kg

DRUGS (11)
  1. ALEVE [Suspect]
     Indication: ARTHRALGIA
     Dosage: TOOK 1 TO 2 ALEVE
     Route: 048
     Dates: start: 20100301, end: 20100401
  2. ALEVE [Suspect]
     Dosage: TOTAL DAILY DOSE: 220 MG  UNIT DOSE: 220 MG
     Route: 048
     Dates: start: 20100412
  3. WARFARIN SODIUM [Concomitant]
     Route: 065
  4. PREVACID [Concomitant]
     Route: 065
  5. LEVOTHYROXINE SODIUM [Concomitant]
     Route: 065
  6. METFORMIN HYDROCHLORIDE [Concomitant]
     Route: 065
  7. DEMADEX [Concomitant]
     Route: 065
  8. MICARDIS [Concomitant]
     Route: 065
  9. ZAROXOLYN [Concomitant]
     Route: 065
  10. FLOMAX [Concomitant]
     Route: 065
  11. MESTINON [Concomitant]
     Route: 065

REACTIONS (2)
  - PROTHROMBIN TIME SHORTENED [None]
  - RASH MACULAR [None]
